FAERS Safety Report 10357649 (Version 4)
Quarter: 2014Q4

REPORT INFORMATION
  Report Type: Spontaneous
  Country: JP (occurrence: JP)
  Receive Date: 20140801
  Receipt Date: 20141103
  Transmission Date: 20150528
  Serious: Yes (Other)
  Sender: FDA-Public Use
  Company Number: JP-ABBVIE-14P-087-1267530-00

PATIENT
  Age: 60 Year
  Sex: Female

DRUGS (2)
  1. CLARITH [Suspect]
     Active Substance: CLARITHROMYCIN
     Indication: BRONCHITIS
     Route: 065
  2. DISOPYRAMIDE [Interacting]
     Active Substance: DISOPYRAMIDE
     Indication: ATRIAL FIBRILLATION
     Route: 048

REACTIONS (4)
  - Drug interaction [Recovered/Resolved]
  - Hypoglycaemic encephalopathy [Recovered/Resolved]
  - Electrocardiogram QT prolonged [Recovered/Resolved]
  - Hypoglycaemia [Recovered/Resolved]
